FAERS Safety Report 23999828 (Version 1)
Quarter: 2024Q2

REPORT INFORMATION
  Report Type: Spontaneous
  Country: US (occurrence: US)
  Receive Date: 20240621
  Receipt Date: 20240621
  Transmission Date: 20240716
  Serious: No
  Sender: FDA-Public Use
  Company Number: US-BAYER-2024A085718

PATIENT
  Age: 50 Year
  Sex: Female

DRUGS (1)
  1. MIRENA [Suspect]
     Active Substance: LEVONORGESTREL
     Indication: Heavy menstrual bleeding
     Dosage: 20?G/DAY
     Route: 015
     Dates: start: 20210322, end: 20240419

REACTIONS (16)
  - Dizziness [None]
  - Hypoaesthesia [Recovering/Resolving]
  - Formication [Recovering/Resolving]
  - Muscle twitching [Recovering/Resolving]
  - Anxiety [Recovering/Resolving]
  - Sleep disorder [Recovering/Resolving]
  - Hyperhidrosis [Recovering/Resolving]
  - Abdominal distension [Recovering/Resolving]
  - Pelvic pain [Recovering/Resolving]
  - Palpitations [Recovering/Resolving]
  - Uterine spasm [Recovering/Resolving]
  - Fatigue [Recovering/Resolving]
  - Feeling abnormal [Recovering/Resolving]
  - Brain fog [Recovering/Resolving]
  - Vision blurred [Recovering/Resolving]
  - Paraesthesia [Recovering/Resolving]
